FAERS Safety Report 10059013 (Version 1)
Quarter: 2014Q2

REPORT INFORMATION
  Report Type: Spontaneous
  Country: US (occurrence: US)
  Receive Date: 20140404
  Receipt Date: 20140404
  Transmission Date: 20141212
  Serious: No
  Sender: FDA-Public Use
  Company Number: US-GLAXOSMITHKLINE-A1016666A

PATIENT
  Age: 75 Year
  Sex: Male

DRUGS (2)
  1. ALLI [Suspect]
     Indication: WEIGHT DECREASED
     Dates: start: 201303
  2. WARFARIN [Concomitant]

REACTIONS (8)
  - Dyspnoea [Recovered/Resolved]
  - Anxiety [Recovered/Resolved]
  - Dyspnoea [Recovered/Resolved]
  - Initial insomnia [Recovered/Resolved]
  - Retching [Recovered/Resolved]
  - Vomiting [Recovered/Resolved]
  - Treatment noncompliance [Unknown]
  - Drug administration error [Unknown]
